FAERS Safety Report 23466303 (Version 1)
Quarter: 2024Q1

REPORT INFORMATION
  Report Type: Spontaneous
  Country: US (occurrence: US)
  Receive Date: 20240201
  Receipt Date: 20240201
  Transmission Date: 20240410
  Serious: Yes (Other)
  Sender: FDA-Public Use
  Company Number: US-AMGEN-USASP2024016829

PATIENT
  Sex: Female

DRUGS (1)
  1. PROLIA [Suspect]
     Active Substance: DENOSUMAB
     Indication: Bone density abnormal
     Dosage: UNK, Q6MO
     Route: 065

REACTIONS (6)
  - Arthropathy [Unknown]
  - Spinal operation [Unknown]
  - Jaw clicking [Unknown]
  - Bone disorder [Unknown]
  - Bone pain [Unknown]
  - Pain in extremity [Unknown]
